FAERS Safety Report 12325452 (Version 4)
Quarter: 2016Q2

REPORT INFORMATION
  Report Type: Report from Study
  Country: US (occurrence: US)
  Receive Date: 20160502
  Receipt Date: 20160616
  Transmission Date: 20160815
  Serious: Yes (Other)
  Sender: FDA-Public Use
  Company Number: US-AMGEN-USASL2016054351

PATIENT
  Age: 58 Year
  Sex: Male

DRUGS (1)
  1. ENBREL [Suspect]
     Active Substance: ETANERCEPT
     Indication: RHEUMATOID ARTHRITIS
     Dosage: 50 MG, WEEKLY
     Route: 065
     Dates: start: 20160418

REACTIONS (13)
  - Pollakiuria [Unknown]
  - Palpitations [Not Recovered/Not Resolved]
  - Cardiac disorder [Unknown]
  - Feeling abnormal [Recovered/Resolved]
  - Nervousness [Not Recovered/Not Resolved]
  - Weight decreased [Unknown]
  - Anxiety [Recovered/Resolved]
  - Insomnia [Recovered/Resolved]
  - Visual impairment [Not Recovered/Not Resolved]
  - Chills [Recovering/Resolving]
  - Hyperglycaemia [Recovered/Resolved]
  - Polyuria [Not Recovered/Not Resolved]
  - Muscle spasms [Not Recovered/Not Resolved]

NARRATIVE: CASE EVENT DATE: 2016
